FAERS Safety Report 5372253-7 (Version None)
Quarter: 2007Q2

REPORT INFORMATION
  Report Type: 
  Country: None (occurrence: None)
  Receive Date: 20070618
  Receipt Date: 20070430
  Transmission Date: 20071010
  Serious: Yes (Other)
  Sender: FDA-Public Use
  Company Number: 07-040

PATIENT
  Age: 16 Year
  Sex: Female

DRUGS (1)
  1. ALEVE [Suspect]
     Indication: MIGRAINE
     Dosage: 880 MG, DAILY, ORAL
     Route: 048
     Dates: start: 20070424

REACTIONS (1)
  - VOMITING [None]
